FAERS Safety Report 8839220 (Version 1)
Quarter: 2012Q4

REPORT INFORMATION
  Report Type: Report from Study
  Country: US (occurrence: US)
  Receive Date: 20121015
  Receipt Date: 20121015
  Transmission Date: 20130627
  Serious: Yes (Hospitalization)
  Sender: FDA-Public Use
  Company Number: US-SHIRE-SPV1-2011-00285

PATIENT
  Age: 15 Year
  Sex: Male
  Weight: 83.4 kg

DRUGS (3)
  1. GUANFACINE HYDROCHLORIDE [Suspect]
     Indication: ATTENTION DEFICIT/HYPERACTIVITY DISORDER
     Dosage: 6 mg, 1x/day:qd
     Route: 048
     Dates: start: 20110209, end: 201102
  2. GUANFACINE HYDROCHLORIDE [Suspect]
     Dosage: UNK UNK, Unknown
     Route: 048
     Dates: start: 20101015, end: 20110208
  3. GUANFACINE HYDROCHLORIDE [Suspect]
     Dosage: UNK, 1x/day:qd
     Route: 048
     Dates: start: 201102, end: 20110216

REACTIONS (5)
  - Aggression [Recovered/Resolved]
  - Anger [Recovered/Resolved]
  - Agitation [None]
  - Dysphoria [None]
  - Abnormal behaviour [None]
